FAERS Safety Report 15904698 (Version 1)
Quarter: 2019Q1

REPORT INFORMATION
  Report Type: Report from Study
  Country: CN (occurrence: CN)
  Receive Date: 20190204
  Receipt Date: 20190204
  Transmission Date: 20190417
  Serious: Yes (Other)
  Sender: FDA-Public Use
  Company Number: CN-ROCHE-2252717

PATIENT

DRUGS (4)
  1. CAPECITABINE. [Suspect]
     Active Substance: CAPECITABINE
     Indication: COLORECTAL CANCER
     Route: 048
  2. OXALIPLATIN. [Suspect]
     Active Substance: OXALIPLATIN
     Indication: COLORECTAL CANCER
     Route: 065
  3. OXALIPLATIN. [Suspect]
     Active Substance: OXALIPLATIN
     Indication: METASTASES TO LIVER
  4. CAPECITABINE. [Suspect]
     Active Substance: CAPECITABINE
     Indication: METASTASES TO LIVER

REACTIONS (15)
  - Abdominal pain [Unknown]
  - Fatigue [Unknown]
  - Haemoglobin decreased [Unknown]
  - Transaminases increased [Unknown]
  - Blood bilirubin increased [Unknown]
  - Vomiting [Unknown]
  - Infection [Unknown]
  - Haematotoxicity [Unknown]
  - Neutrophil count decreased [Unknown]
  - Diarrhoea [Unknown]
  - Platelet count decreased [Unknown]
  - Decreased appetite [Unknown]
  - White blood cell count decreased [Unknown]
  - Nausea [Unknown]
  - Palmar-plantar erythrodysaesthesia syndrome [Unknown]
